FAERS Safety Report 16006193 (Version 2)
Quarter: 2020Q1

REPORT INFORMATION
  Report Type: Spontaneous
  Country: SA (occurrence: SA)
  Receive Date: 20190226
  Receipt Date: 20200317
  Transmission Date: 20200409
  Serious: Yes (Other)
  Sender: FDA-Public Use
  Company Number: SA-TASMAN PHARMA, INC.-2019TSM00009

PATIENT
  Age: 38 Year
  Sex: Female

DRUGS (3)
  1. CLOZAPINE. [Suspect]
     Active Substance: CLOZAPINE
     Dosage: 500 MG
     Route: 065
  2. CLOZAPINE. [Suspect]
     Active Substance: CLOZAPINE
     Indication: SCHIZOPHRENIA
     Dosage: 50 MG
     Route: 065
  3. CLOZAPINE. [Suspect]
     Active Substance: CLOZAPINE
     Dosage: 700 MG
     Route: 065

REACTIONS (4)
  - Urinary tract infection [Recovering/Resolving]
  - Respiratory tract infection [Recovering/Resolving]
  - Autonomic nervous system imbalance [Recovering/Resolving]
  - Agranulocytosis [Recovering/Resolving]
